FAERS Safety Report 9099603 (Version 2)
Quarter: 2013Q1

REPORT INFORMATION
  Report Type: Report from Study
  Country: CN (occurrence: CN)
  Receive Date: 20130213
  Receipt Date: 20130307
  Transmission Date: 20140127
  Serious: Yes (Death, Life-Threatening, Hospitalization)
  Sender: FDA-Public Use
  Company Number: CN-BRISTOL-MYERS SQUIBB COMPANY-17374851

PATIENT
  Age: 57 Year
  Sex: Male

DRUGS (6)
  1. CETUXIMAB [Suspect]
     Indication: NASOPHARYNGEAL CANCER
     Dosage: 360MG/M2,SUBSEQUENT DOSE-UNK-25JAN13
     Dates: start: 20121217, end: 20130125
  2. CISPLATIN [Suspect]
     Indication: NASOPHARYNGEAL CANCER
     Dates: start: 20121217
  3. DOCETAXEL [Suspect]
     Indication: NASOPHARYNGEAL CANCER
     Dates: start: 20121217, end: 20130125
  4. FLUOROURACIL [Suspect]
     Indication: NASOPHARYNGEAL CANCER
     Dates: start: 20121217
  5. CIPROFLOXACIN [Concomitant]
     Dates: start: 20121101, end: 20121104
  6. NIFEDIPINE [Concomitant]
     Dates: start: 20121030, end: 20121102

REACTIONS (1)
  - Lower respiratory tract infection [Fatal]
